FAERS Safety Report 11208153 (Version 2)
Quarter: 2015Q3

REPORT INFORMATION
  Report Type: Spontaneous
  Country: JP (occurrence: JP)
  Receive Date: 20150622
  Receipt Date: 20150716
  Transmission Date: 20151125
  Serious: Yes (Other)
  Sender: FDA-Public Use
  Company Number: JP-PFIZER INC-2015201561

PATIENT
  Age: 82 Year
  Sex: Female

DRUGS (2)
  1. PROGESTON [Concomitant]
     Active Substance: MEDROXYPROGESTERONE ACETATE
     Dosage: UNK
     Dates: start: 20071129
  2. PREMARIN [Suspect]
     Active Substance: ESTROGENS, CONJUGATED
     Dosage: UNK
     Route: 048
     Dates: start: 20071129

REACTIONS (3)
  - Deep vein thrombosis [Unknown]
  - Peripheral swelling [Recovering/Resolving]
  - Arthropathy [Unknown]
